FAERS Safety Report 25852028 (Version 3)
Quarter: 2025Q4

REPORT INFORMATION
  Report Type: Spontaneous
  Country: MX (occurrence: MX)
  Receive Date: 20250926
  Receipt Date: 20251006
  Transmission Date: 20260119
  Serious: Yes (Death, Other)
  Sender: INCYTE
  Company Number: MX-MIMS-2025-MX-00437

PATIENT
  Age: 40 Year

DRUGS (1)
  1. PEMAZYRE [Suspect]
     Active Substance: PEMIGATINIB
     Indication: Cholangiocarcinoma
     Dosage: UNK, UNK
     Route: 065

REACTIONS (1)
  - Disease progression [Fatal]
